FAERS Safety Report 5194709-2 (Version None)
Quarter: 2006Q4

REPORT INFORMATION
  Report Type: 
  Country: None (occurrence: None)
  Receive Date: 20061229
  Receipt Date: 20040205
  Transmission Date: 20070319
  Serious: Yes (Other)
  Sender: FDA-Public Use
  Company Number: PHBS2004BR01852

PATIENT
  Age: 51 Year
  Sex: Female
  Weight: 76 kg

DRUGS (7)
  1. ZELMAC [Suspect]
     Indication: IRRITABLE BOWEL SYNDROME
     Dosage: 6 MG, BID
     Route: 048
     Dates: start: 20040425
  2. ZELMAC [Suspect]
     Dosage: 6 MG, BID
     Route: 048
     Dates: start: 20040205
  3. ZELMAC [Suspect]
     Dosage: 6 MG, BID
     Route: 048
     Dates: start: 20060201
  4. OMEPRAZOLE [Concomitant]
     Indication: GASTRITIS
     Dosage: UNK, UNK
     Route: 065
  5. LIPITOR [Concomitant]
     Indication: BLOOD CHOLESTEROL
     Dosage: 20 MG, UNK
  6. ARTRODAR [Concomitant]
     Indication: OSTEOARTHRITIS
     Dosage: 50 MG, UNK
  7. ARCOXIA [Concomitant]
     Indication: BONE PAIN
     Dosage: 100 MG/DAY

REACTIONS (8)
  - COLITIS [None]
  - DIVERTICULUM INTESTINAL [None]
  - DRUG INEFFECTIVE [None]
  - FLATULENCE [None]
  - GASTRITIS [None]
  - HEADACHE [None]
  - HEPATIC STEATOSIS [None]
  - MUCOSAL INFLAMMATION [None]
